FAERS Safety Report 6071382-2 (Version None)
Quarter: 2009Q1

REPORT INFORMATION
  Report Type: 
  Country: None (occurrence: None)
  Receive Date: 20090209
  Receipt Date: 20090128
  Transmission Date: 20090719
  Serious: Yes (Other)
  Sender: FDA-Public Use
  Company Number: GB-GILEAD-2009-0020098

PATIENT

DRUGS (6)
  1. TRUVADA [Suspect]
     Indication: HIV INFECTION
     Route: 048
     Dates: start: 20060525, end: 20080325
  2. PREZISTA [Concomitant]
     Dates: start: 20080103, end: 20080325
  3. RITONAVIR [Concomitant]
     Dates: start: 20080103, end: 20080325
  4. KALETRA [Concomitant]
     Dates: start: 20080326
  5. COMBIVIR [Concomitant]
     Dates: start: 20080326, end: 20081124
  6. ZIDOVUDINE [Concomitant]
     Dates: start: 20081109, end: 20081109

REACTIONS (3)
  - MATERNAL DRUGS AFFECTING FOETUS [None]
  - PREMATURE BABY [None]
  - SMALL FOR DATES BABY [None]
